FAERS Safety Report 19410439 (Version 1)
Quarter: 2021Q2

REPORT INFORMATION
  Report Type: Spontaneous
  Country: US (occurrence: US)
  Receive Date: 20210612
  Receipt Date: 20210612
  Transmission Date: 20210717
  Serious: Yes (Hospitalization)
  Sender: FDA-Public Use
  Company Number: None

PATIENT
  Sex: Male

DRUGS (7)
  1. TACROLIMUS 1MG/ML ORAL SUSP [Suspect]
     Active Substance: TACROLIMUS
     Indication: RENAL TRANSPLANT
     Dosage: ?          OTHER FREQUENCY:Q12HRS;?
     Route: 048
     Dates: start: 20210324
  2. AMOX/K CLAV [Concomitant]
     Active Substance: AMOXICILLIN\CLAVULANATE POTASSIUM
  3. SOD CITRATE [Concomitant]
  4. PROPRANOLOL [Concomitant]
     Active Substance: PROPRANOLOL HYDROCHLORIDE
  5. MYCOPHENOLATE 200 MG/ML SUSP [Suspect]
     Active Substance: MYCOPHENOLATE MOFETIL
     Indication: RENAL TRANSPLANT
     Route: 048
     Dates: start: 20210324
  6. AZATHIOPRINE. [Concomitant]
     Active Substance: AZATHIOPRINE
  7. LANSOPRAZOLE. [Concomitant]
     Active Substance: LANSOPRAZOLE

REACTIONS (1)
  - Hospitalisation [None]
